FAERS Safety Report 13411048 (Version 3)
Quarter: 2023Q2

REPORT INFORMATION
  Report Type: Spontaneous
  Country: US (occurrence: US)
  Receive Date: 20170406
  Receipt Date: 20230607
  Transmission Date: 20230721
  Serious: Yes (Other)
  Sender: FDA-Public Use
  Company Number: US-JNJFOC-20170304662

PATIENT
  Age: 19 Year
  Sex: Male

DRUGS (12)
  1. RISPERDAL [Suspect]
     Active Substance: RISPERIDONE
     Indication: Schizoaffective disorder
     Route: 048
     Dates: start: 20080229
  2. RISPERDAL [Suspect]
     Active Substance: RISPERIDONE
     Dosage: 1MG,2MG
     Route: 048
     Dates: start: 201209
  3. RISPERIDONE [Suspect]
     Active Substance: RISPERIDONE
     Indication: Schizoaffective disorder
     Route: 048
     Dates: start: 20080812, end: 20111003
  4. RISPERIDONE [Suspect]
     Active Substance: RISPERIDONE
     Dosage: VARYING DOSES OF 1 AND 3 MG
     Route: 048
     Dates: start: 20120523, end: 20120811
  5. RISPERIDONE [Suspect]
     Active Substance: RISPERIDONE
     Dosage: 4 MG
     Route: 048
     Dates: start: 20130807, end: 20130816
  6. RISPERIDONE [Suspect]
     Active Substance: RISPERIDONE
     Route: 048
     Dates: start: 201308, end: 20130819
  7. INVEGA [Suspect]
     Active Substance: PALIPERIDONE
     Indication: Schizoaffective disorder
     Route: 048
  8. INVEGA [Suspect]
     Active Substance: PALIPERIDONE
     Route: 048
     Dates: start: 20130820
  9. INVEGA SUSTENNA [Suspect]
     Active Substance: PALIPERIDONE PALMITATE
     Indication: Schizoaffective disorder
     Route: 030
  10. INVEGA SUSTENNA [Suspect]
     Active Substance: PALIPERIDONE PALMITATE
     Route: 030
     Dates: start: 20130816
  11. INVEGA SUSTENNA [Suspect]
     Active Substance: PALIPERIDONE PALMITATE
     Dosage: VARYING DOSES OF 6, 9, 78, 117 EVERY 4 WEEKS, 156 AND 234 MG
     Route: 030
     Dates: start: 20130817, end: 20150901
  12. INVEGA SUSTENNA [Suspect]
     Active Substance: PALIPERIDONE PALMITATE
     Route: 030
     Dates: start: 200405

REACTIONS (5)
  - Overweight [Unknown]
  - Emotional disorder [Unknown]
  - Gynaecomastia [Unknown]
  - Drug intolerance [Unknown]
  - Inappropriate schedule of product administration [Unknown]

NARRATIVE: CASE EVENT DATE: 20130807
